FAERS Safety Report 20990287 (Version 1)
Quarter: 2022Q2

REPORT INFORMATION
  Report Type: Spontaneous
  Country: NL (occurrence: NL)
  Receive Date: 20220622
  Receipt Date: 20220622
  Transmission Date: 20220720
  Serious: Yes (Other)
  Sender: FDA-Public Use
  Company Number: NL-LRB-00812726

PATIENT
  Sex: Male
  Weight: 70 kg

DRUGS (5)
  1. GALANTAMINE [Suspect]
     Active Substance: GALANTAMINE
     Indication: Dementia Alzheimer^s type
     Dosage: 24 MILLIGRAM, ONCE A DAY
     Route: 065
  2. GALANTAMINE [Suspect]
     Active Substance: GALANTAMINE
     Dosage: 16 MILLIGRAM, ONCE A DAY
     Route: 065
     Dates: start: 20220426
  3. Salflutin [Concomitant]
     Indication: Product used for unknown indication
     Dosage: INHALATION POWDER, 50/500 ?G/DOSE (MICROGRAMS PER DOSE)
     Route: 065
  4. ATORVASTATIN [Concomitant]
     Active Substance: ATORVASTATIN
     Indication: Product used for unknown indication
     Dosage: 40 MILLIGRAM, UNK
     Route: 065
  5. TAMSULOSIN [Concomitant]
     Active Substance: TAMSULOSIN
     Indication: Product used for unknown indication
     Dosage: 0.4 MILLIGRAM, UNK
     Route: 065

REACTIONS (2)
  - Suicidal ideation [Recovered/Resolved]
  - Depressed mood [Recovered/Resolved]
